FAERS Safety Report 10616467 (Version 1)
Quarter: 2014Q4

REPORT INFORMATION
  Report Type: Spontaneous
  Country: US (occurrence: None)
  Receive Date: 20141126
  Receipt Date: 20141126
  Transmission Date: 20150529
  Serious: Yes (Other)
  Sender: FDA-Public Use
  Company Number: None

PATIENT
  Age: 17 Year
  Sex: Female
  Weight: 83.2 kg

DRUGS (5)
  1. ARIPIPRAZOLE (ABILIFY) [Concomitant]
  2. TRAZODONE (DESYREL) [Concomitant]
  3. BUSPIRONE (BUSPAR) [Concomitant]
  4. CABERGOLINE. [Suspect]
     Active Substance: CABERGOLINE
     Indication: PROLACTINOMA
     Dosage: 1 PILL TWICE WEEKLY ORAL
     Route: 048
     Dates: start: 20141115, end: 20141124
  5. CABERGOLINE. [Concomitant]
     Active Substance: CABERGOLINE

REACTIONS (2)
  - Urticaria [None]
  - Nausea [None]

NARRATIVE: CASE EVENT DATE: 20141124
